FAERS Safety Report 5341242-0 (Version None)
Quarter: 2007Q2

REPORT INFORMATION
  Report Type: 
  Country: None (occurrence: None)
  Receive Date: 20070404
  Receipt Date: 20060502
  Transmission Date: 20071010
  Serious: Yes (Hospitalization)
  Sender: FDA-Public Use
  Company Number: 20060093

PATIENT
  Sex: Male

DRUGS (1)
  1. DEXFERRUM [Suspect]
     Dosage: 25 MG TEST DOSE
     Dates: start: 20060428, end: 20060428

REACTIONS (1)
  - ANAPHYLACTIC REACTION [None]
